FAERS Safety Report 7702330-4 (Version None)
Quarter: 2011Q3

REPORT INFORMATION
  Report Type: 
  Country: None (occurrence: None)
  Receive Date: 20110822
  Receipt Date: 20110811
  Transmission Date: 20111222
  Serious: Yes (Other)
  Sender: FDA-Public Use
  Company Number: PHHY2011KR73860

PATIENT
  Age: 79 Year
  Sex: Female

DRUGS (3)
  1. NAPROXEN [Suspect]
     Indication: OSTEOARTHRITIS
     Dosage: 275 MG, UNK
  2. PIROXICAM [Suspect]
     Indication: OSTEOARTHRITIS
     Dosage: 20 MG, UNK
  3. DICLOFENAC SODIUM [Suspect]
     Indication: OSTEOARTHRITIS
     Dosage: 25 MG, UNK

REACTIONS (4)
  - INTESTINAL ULCER [None]
  - HAEMATOCHEZIA [None]
  - INTESTINAL DIAPHRAGM DISEASE [None]
  - ABDOMINAL PAIN [None]
